FAERS Safety Report 6652149-0 (Version None)
Quarter: 2010Q1

REPORT INFORMATION
  Report Type: 
  Country: None (occurrence: None)
  Receive Date: 20100323
  Receipt Date: 20100310
  Transmission Date: 20100710
  Serious: Yes (Other)
  Sender: FDA-Public Use
  Company Number: 2010AP000100

PATIENT
  Sex: Male

DRUGS (2)
  1. ZOLIPEM TARTRATE    TABLETS (10 MG) [Suspect]
     Dosage: PO
     Route: 048
  2. ZOLPIDEM [Concomitant]

REACTIONS (3)
  - LOSS OF CONSCIOUSNESS [None]
  - MEMORY IMPAIRMENT [None]
  - TRANCE [None]
